FAERS Safety Report 6424497-0 (Version None)
Quarter: 2009Q4

REPORT INFORMATION
  Report Type: 
  Country: None (occurrence: None)
  Receive Date: 20091103
  Receipt Date: 20091028
  Transmission Date: 20100525
  Serious: Yes (Hospitalization)
  Sender: FDA-Public Use
  Company Number: CH-WYE-G04558109

PATIENT
  Age: 55 Year
  Sex: Female

DRUGS (6)
  1. EFFEXOR [Suspect]
     Route: 048
     Dates: start: 20090804, end: 20090806
  2. EFFEXOR [Interacting]
     Route: 048
     Dates: start: 20090807, end: 20090810
  3. EFFEXOR [Interacting]
     Route: 048
     Dates: start: 20090811, end: 20090817
  4. EFFEXOR [Interacting]
     Route: 048
     Dates: start: 20090818, end: 20090824
  5. SURMONTIL [Interacting]
     Route: 048
     Dates: start: 20090618, end: 20090720
  6. TAMOXIFEN CITRATE [Concomitant]
     Route: 048
     Dates: end: 20090825

REACTIONS (3)
  - DRUG INTERACTION [None]
  - RESTLESSNESS [None]
  - TREMOR [None]
